FAERS Safety Report 9402302 (Version 1)
Quarter: 2013Q3

REPORT INFORMATION
  Report Type: Spontaneous
  Country: US (occurrence: None)
  Receive Date: 20130712
  Receipt Date: 20130712
  Transmission Date: 20140515
  Serious: No
  Sender: FDA-Public Use
  Company Number: None

PATIENT
  Age: 41 Year
  Sex: Female

DRUGS (1)
  1. COPAXONE [Suspect]
     Dosage: SQ
     Dates: start: 20130613, end: 20130707

REACTIONS (3)
  - Insomnia [None]
  - Oedema [None]
  - Irritability [None]
